FAERS Safety Report 6560964-7 (Version None)
Quarter: 2010Q1

REPORT INFORMATION
  Report Type: 
  Country: None (occurrence: None)
  Receive Date: 20100130
  Receipt Date: 20090929
  Transmission Date: 20100710
  Serious: No
  Sender: FDA-Public Use
  Company Number: US-ABBOTT-09P-163-0600300-00

PATIENT
  Sex: Female
  Weight: 72.64 kg

DRUGS (6)
  1. HUMIRA [Suspect]
     Indication: RHEUMATOID ARTHRITIS
     Route: 058
     Dates: start: 20020101, end: 20090922
  2. HUMIRA [Suspect]
     Indication: RHEUMATOID ARTHRITIS
     Route: 058
     Dates: start: 20090922
  3. IBUPROFEN [Concomitant]
     Indication: PAIN
     Dosage: UNKNOWN
  4. IBUPROFEN [Concomitant]
     Indication: ARTHRITIS
  5. METHOTREXATE [Concomitant]
     Indication: RHEUMATOID ARTHRITIS
  6. UNKNOWN MEDICATION [Concomitant]
     Indication: HYPERTENSION
     Dosage: UNKNOWN, DOSNT REMEMBER

REACTIONS (4)
  - FATIGUE [None]
  - INJECTION SITE PAIN [None]
  - INJECTION SITE URTICARIA [None]
  - PAIN [None]
